FAERS Safety Report 12717326 (Version 7)
Quarter: 2022Q4

REPORT INFORMATION
  Report Type: Report from Study
  Country: PH (occurrence: PH)
  Receive Date: 20160906
  Receipt Date: 20221212
  Transmission Date: 20230112
  Serious: Yes (Other)
  Sender: FDA-Public Use
  Company Number: PH-BEH-2015053085

PATIENT
  Age: 11 Year
  Sex: Male
  Weight: 30 kg

DRUGS (6)
  1. AMOXICILLIN\CLAVULANATE POTASSIUM [Concomitant]
     Active Substance: AMOXICILLIN\CLAVULANATE POTASSIUM
     Indication: Wound infection
     Route: 048
     Dates: start: 20150626, end: 20150705
  2. Cetirizine 5 mg/mL [Concomitant]
     Indication: Hypersensitivity
     Dosage: DOSE: 7.5 MG AND 7.5 ML REPORTED [SIC!], ONGOING: YES
     Route: 048
     Dates: start: 20150710
  3. Cetirizine 5 mg/mL [Concomitant]
     Indication: Premedication
  4. Multivitamins plus Iron syrup [Concomitant]
     Indication: Nutritional supplementation
     Dosage: 5 MILLILITER
     Route: 048
     Dates: start: 20150529, end: 20150616
  5. Multivitamins plus Iron syrup [Concomitant]
     Dosage: ONGOING: YES
     Route: 048
     Dates: start: 20150617
  6. FERROUS SULFATE [Concomitant]
     Active Substance: FERROUS SULFATE
     Indication: Supplementation therapy
     Dosage: 5 MILLILITER
     Route: 065
     Dates: start: 20150731

REACTIONS (1)
  - Anti factor IX antibody positive [Not Recovered/Not Resolved]

NARRATIVE: CASE EVENT DATE: 20150807
